FAERS Safety Report 13748026 (Version 1)
Quarter: 2017Q3

REPORT INFORMATION
  Report Type: Spontaneous
  Country: US (occurrence: US)
  Receive Date: 20170713
  Receipt Date: 20170713
  Transmission Date: 20171127
  Serious: No
  Sender: FDA-Public Use
  Company Number: US-GE HEALTHCARE LIFE SCIENCES-2017CSU001915

PATIENT
  Age: 73 Year

DRUGS (3)
  1. OMNISCAN [Suspect]
     Active Substance: GADODIAMIDE
     Indication: CARCINOID TUMOUR
     Dosage: 18 DOSES
     Route: 042
  2. SORAFENIB [Concomitant]
     Active Substance: SORAFENIB
     Indication: CARCINOID TUMOUR
  3. SANDOSTATIN [Concomitant]
     Active Substance: OCTREOTIDE ACETATE
     Indication: CARCINOID TUMOUR

REACTIONS (1)
  - Medication residue present [Not Recovered/Not Resolved]
